FAERS Safety Report 8541486-0 (Version None)
Quarter: 2012Q3

REPORT INFORMATION
  Report Type: 
  Country: None (occurrence: None)
  Receive Date: 20120726
  Receipt Date: 20120717
  Transmission Date: 20120928
  Serious: No
  Sender: FDA-Public Use
  Company Number: US-009507513-1207USA005704

PATIENT

DRUGS (2)
  1. COZAAR [Suspect]
     Indication: HYPERTENSION
     Dosage: 50 MG, QD
     Route: 048
     Dates: start: 20120716
  2. HYDROXYZINE [Concomitant]

REACTIONS (5)
  - HEADACHE [None]
  - DIARRHOEA [None]
  - NAUSEA [None]
  - DIZZINESS [None]
  - INSOMNIA [None]
